FAERS Safety Report 23512938 (Version 3)
Quarter: 2024Q3

REPORT INFORMATION
  Report Type: Spontaneous
  Country: US (occurrence: US)
  Receive Date: 20240212
  Receipt Date: 20240709
  Transmission Date: 20241017
  Serious: Yes (Hospitalization, Other)
  Sender: BRISTOL MYERS SQUIBB
  Company Number: US-BRISTOL-MYERS SQUIBB COMPANY-2024-020988

PATIENT
  Age: 76 Year
  Sex: Male
  Weight: 92.99 kg

DRUGS (3)
  1. REVLIMID [Suspect]
     Active Substance: LENALIDOMIDE
     Indication: Plasma cell myeloma
     Dosage: DAILY
     Route: 048
  2. REVLIMID [Suspect]
     Active Substance: LENALIDOMIDE
     Dosage: DAILY
     Route: 048
  3. REVLIMID [Suspect]
     Active Substance: LENALIDOMIDE
     Dosage: 10MG CAPSULE DAILY FOR 7 DAYS ON THEN 7 DAYS OFF
     Route: 048

REACTIONS (5)
  - Cardiac failure [Unknown]
  - Swelling [Unknown]
  - Full blood count abnormal [Unknown]
  - Off label use [Unknown]
  - Platelet count decreased [Unknown]
